FAERS Safety Report 4798281-8 (Version None)
Quarter: 2005Q4

REPORT INFORMATION
  Report Type: 
  Country: None (occurrence: None)
  Receive Date: 20051006
  Receipt Date: 20051006
  Transmission Date: 20060501
  Serious: Yes (Hospitalization)
  Sender: FDA-Public Use
  Company Number: None

PATIENT
  Age: 80 Year
  Sex: Male
  Weight: 79 kg

DRUGS (7)
  1. DESMOPRESSIN [Suspect]
     Indication: ENURESIS
     Dosage: 0.3 MG PO TID
     Route: 048
  2. CLOPIDOGREL [Concomitant]
  3. ATENOLOL [Concomitant]
  4. ATORVASTATIN [Concomitant]
  5. VALSARTAN [Concomitant]
  6. M.V.I. [Concomitant]
  7. GLUCOPHAGE [Concomitant]

REACTIONS (4)
  - HYPONATRAEMIA [None]
  - ORAL INTAKE REDUCED [None]
  - POLYURIA [None]
  - SYNCOPE [None]
